FAERS Safety Report 16720638 (Version 2)
Quarter: 2019Q4

REPORT INFORMATION
  Report Type: Spontaneous
  Country: FR (occurrence: FR)
  Receive Date: 20190820
  Receipt Date: 20191213
  Transmission Date: 20200122
  Serious: Yes (Hospitalization)
  Sender: FDA-Public Use
  Company Number: FR-MYLANLABS-2019M1076956

PATIENT
  Age: 57 Year
  Sex: Female
  Weight: 97 kg

DRUGS (10)
  1. CLARITHROMYCIN. [Suspect]
     Active Substance: CLARITHROMYCIN
     Indication: GASTRIC ULCER HELICOBACTER
     Dosage: 1000 MILLIGRAM, QD
     Route: 048
     Dates: start: 20190213, end: 20190227
  2. LANSOPRAZOLE. [Suspect]
     Active Substance: LANSOPRAZOLE
     Indication: PEPTIC ULCER
     Dosage: 30 MILLIGRAM, QD
     Route: 048
     Dates: start: 20190129, end: 20190302
  3. ESOMEPRAZOLE MYLAN [Suspect]
     Active Substance: ESOMEPRAZOLE
     Indication: GASTRIC ULCER HELICOBACTER
     Dosage: 40 MILLIGRAM, QD
     Route: 048
     Dates: start: 20190213, end: 20190227
  4. IRBESARTAN. [Concomitant]
     Active Substance: IRBESARTAN
     Indication: HYPERTENSION
     Dosage: 300 MILLIGRAM, QD
     Route: 048
  5. PYRIDOXINE [Concomitant]
     Active Substance: PYRIDOXINE
     Indication: VITAMIN SUPPLEMENTATION
     Dosage: INCONNUE
     Route: 048
  6. METFORMINE                         /00082701/ [Concomitant]
     Active Substance: METFORMIN HYDROCHLORIDE
     Indication: TYPE 2 DIABETES MELLITUS
     Dosage: 1 GRAM, QD
     Route: 048
     Dates: end: 20190302
  7. AMOXICILLIN. [Suspect]
     Active Substance: AMOXICILLIN
     Indication: GASTRIC ULCER HELICOBACTER
     Dosage: 2 GRAM, QD
     Route: 048
     Dates: start: 20190213, end: 20190227
  8. KARDEGIC [Concomitant]
     Active Substance: ASPIRIN DL-LYSINE
     Indication: CARDIOVASCULAR EVENT PROPHYLAXIS
     Dosage: 1 DOSAGE FORM, QD
     Route: 048
  9. METRONIDAZOLE. [Suspect]
     Active Substance: METRONIDAZOLE
     Indication: GASTRIC ULCER HELICOBACTER
     Dosage: 1000 MILLIGRAM, QD
     Route: 048
     Dates: start: 20190213, end: 20190227
  10. THIAMINE. [Concomitant]
     Active Substance: THIAMINE
     Indication: VITAMIN SUPPLEMENTATION
     Dosage: INCONNUE
     Route: 048

REACTIONS (5)
  - Jaundice [Recovered/Resolved]
  - Asthenia [Recovered/Resolved]
  - Hepatitis [Recovered/Resolved]
  - Hyperbilirubinaemia [Recovering/Resolving]
  - Prothrombin time ratio decreased [Not Recovered/Not Resolved]

NARRATIVE: CASE EVENT DATE: 20190301
